FAERS Safety Report 6748137-6 (Version None)
Quarter: 2010Q2

REPORT INFORMATION
  Report Type: 
  Country: None (occurrence: None)
  Receive Date: 20100531
  Receipt Date: 20100521
  Transmission Date: 20101027
  Serious: Yes (Other)
  Sender: FDA-Public Use
  Company Number: TR-JNJFOC-20100508688

PATIENT
  Age: 41 Month
  Sex: Male
  Weight: 11 kg

DRUGS (12)
  1. TOPAMAX [Suspect]
     Indication: STATUS EPILEPTICUS
     Route: 065
  2. FENTANYL [Concomitant]
     Route: 065
  3. DORMICUM [Concomitant]
     Route: 065
  4. PHENYTOIN [Concomitant]
     Route: 065
  5. VANCOMYCIN [Concomitant]
     Route: 065
  6. PREDNISOLONE [Concomitant]
     Route: 065
  7. METHOTREXATE [Concomitant]
     Route: 065
  8. PHENOBARBITAL [Concomitant]
     Route: 065
  9. CHLORAL HYDRATE [Concomitant]
     Route: 065
  10. KETAMINE [Concomitant]
     Route: 062
  11. MEROPENEM [Concomitant]
     Route: 065
  12. MANY OTHER UNSPECIFIED MEDICATIONS [Concomitant]
     Route: 065

REACTIONS (4)
  - ALANINE AMINOTRANSFERASE INCREASED [None]
  - AMMONIA INCREASED [None]
  - ASPARTATE AMINOTRANSFERASE INCREASED [None]
  - HEPATOTOXICITY [None]
